FAERS Safety Report 7260545-6 (Version None)
Quarter: 2011Q1

REPORT INFORMATION
  Report Type: 
  Country: None (occurrence: None)
  Receive Date: 20110130
  Receipt Date: 20101220
  Transmission Date: 20110831
  Serious: No
  Sender: FDA-Public Use
  Company Number: US-ABBOTT-10P-163-0692782-00

PATIENT
  Age: 51 Year
  Sex: Male

DRUGS (6)
  1. BUPROPION [Concomitant]
     Indication: DEPRESSION
     Dosage: 300MG 2TABS DAILY AND 150MG DAILY
  2. IBUPROFEN [Concomitant]
     Indication: PAIN
  3. HUMIRA [Suspect]
     Indication: RHEUMATOID ARTHRITIS
     Dates: start: 20100901
  4. ALPRAZOLAM [Concomitant]
     Indication: ANXIETY
     Dosage: 4 TIMES A DAY
  5. LAMOTRIGINE [Concomitant]
     Indication: DEPRESSION
  6. ZOLPIDEM [Concomitant]
     Indication: INSOMNIA
     Dosage: AT BED TIME

REACTIONS (6)
  - CHILLS [None]
  - HEADACHE [None]
  - NAUSEA [None]
  - RHINORRHOEA [None]
  - VOMITING [None]
  - ERYTHEMA [None]
